FAERS Safety Report 8229030-9 (Version None)
Quarter: 2012Q1

REPORT INFORMATION
  Report Type: 
  Country: None (occurrence: None)
  Receive Date: 20120322
  Receipt Date: 20120316
  Transmission Date: 20120608
  Serious: Yes (Death, Other)
  Sender: FDA-Public Use
  Company Number: US-BAYER-200940578NA

PATIENT
  Age: 59 Year
  Sex: Female
  Weight: 96.599 kg

DRUGS (33)
  1. TRASYLOL [Suspect]
     Indication: AORTIC ANEURYSM REPAIR
     Dosage: 80
     Route: 042
     Dates: start: 20041029, end: 20041029
  2. DOPAMINE HCL [Concomitant]
     Dosage: UNK
     Route: 042
     Dates: start: 20041029
  3. MILRINONE [Concomitant]
     Dosage: UNK
     Route: 042
     Dates: start: 20041029
  4. COUMADIN [Concomitant]
  5. LOVENOX [Concomitant]
     Dosage: 40MG EVERY 12 HOURS
     Route: 058
  6. DIGOXIN [Concomitant]
  7. NIFEDIPINE [Concomitant]
  8. TRASYLOL [Suspect]
     Dosage: 50 CC/HOUR INFUSION
     Route: 042
     Dates: start: 20041029, end: 20041029
  9. PHENERGAN EXPECTORANT W/ CODEINE [Concomitant]
     Dosage: 10 ML, TID
     Route: 048
     Dates: start: 20041020
  10. PLATELETS [Concomitant]
     Dosage: 20 U, UNK
     Route: 042
     Dates: start: 20041029
  11. TRASYLOL [Suspect]
     Indication: CARDIAC OPERATION
     Dosage: UNK
     Route: 042
     Dates: start: 20041029
  12. LIPITOR [Concomitant]
  13. ZITHROMAX [Concomitant]
     Dosage: 500 MG, ONCE
     Route: 042
     Dates: start: 20041006
  14. PLASMA [Concomitant]
     Dosage: 7 U, UNK
     Route: 042
     Dates: start: 20041029
  15. EPINEPHRINE [Concomitant]
     Dosage: UNK
     Route: 042
     Dates: start: 20041029
  16. XANAX [Concomitant]
     Dosage: 0.5 MG, BID
     Route: 048
     Dates: start: 20041006
  17. LOPRESSOR [Concomitant]
     Dosage: 50 MG, UNK
  18. ETOMIDATE [Concomitant]
     Dosage: 20
     Route: 042
     Dates: start: 20041029
  19. FENTANYL [Concomitant]
     Dosage: 15 MG, UNK
     Route: 042
     Dates: start: 20041029
  20. VERSED [Concomitant]
     Dosage: 10 MG, UNK
     Route: 042
     Dates: start: 20041029
  21. SOLU-MEDROL [Concomitant]
     Dosage: UNK
     Route: 042
     Dates: start: 20041029
  22. PROTAMINE SULFATE [Concomitant]
     Dosage: UNK
     Route: 042
     Dates: start: 20041029
  23. CLONIDINE [Concomitant]
  24. DOXYCYCLINE [Concomitant]
     Dosage: 100 MG, BID
     Route: 048
     Dates: start: 20041015
  25. MAXIPIME [Concomitant]
     Dosage: 1 G, BID
     Route: 042
     Dates: start: 20041014
  26. CARDIZEM [Concomitant]
     Dosage: 120 MG, UNK
  27. AVANDIA [Concomitant]
  28. AVALIDE [Concomitant]
     Dosage: 300/12.5 DAILY
     Route: 048
  29. RED BLOOD CELLS [Concomitant]
     Dosage: 8 U, UNK
     Route: 042
     Dates: start: 20041029
  30. AMBIEN [Concomitant]
  31. HEPARIN [Concomitant]
     Dosage: UNK
     Route: 042
     Dates: start: 20041029
  32. LEVAQUIN [Concomitant]
     Dosage: 500 MG, ONCE
     Route: 048
     Dates: start: 20041012
  33. ALBUTEROL [Concomitant]
     Dosage: 0.083 %, QID
     Dates: start: 20041023

REACTIONS (13)
  - DEATH [None]
  - RENAL FAILURE [None]
  - FEAR [None]
  - INJURY [None]
  - EMOTIONAL DISTRESS [None]
  - UNEVALUABLE EVENT [None]
  - RENAL IMPAIRMENT [None]
  - ANXIETY [None]
  - ANHEDONIA [None]
  - PAIN [None]
  - MULTI-ORGAN FAILURE [None]
  - RENAL INJURY [None]
  - STRESS [None]
